FAERS Safety Report 9971889 (Version 1)
Quarter: 2014Q1

REPORT INFORMATION
  Report Type: Report from Study
  Country: US (occurrence: US)
  Receive Date: 20140306
  Receipt Date: 20140306
  Transmission Date: 20141002
  Serious: No
  Sender: FDA-Public Use
  Company Number: US-ABBVIE-13P-163-1153645-00

PATIENT
  Sex: Male
  Weight: 94.43 kg

DRUGS (1)
  1. HUMIRA [Suspect]
     Indication: PRODUCT USED FOR UNKNOWN INDICATION
     Route: 058

REACTIONS (5)
  - Fatigue [Unknown]
  - Nervousness [Unknown]
  - Hot flush [Unknown]
  - Arthralgia [Unknown]
  - Back pain [Unknown]
